FAERS Safety Report 22810364 (Version 3)
Quarter: 2023Q4

REPORT INFORMATION
  Report Type: Spontaneous
  Country: US (occurrence: US)
  Receive Date: 20230810
  Receipt Date: 20231106
  Transmission Date: 20240110
  Serious: Yes (Hospitalization)
  Sender: FDA-Public Use
  Company Number: US-PFIZER INC-PV202300137261

PATIENT
  Age: 74 Year
  Sex: Female
  Weight: 59.87 kg

DRUGS (2)
  1. IBRANCE [Suspect]
     Active Substance: PALBOCICLIB
     Indication: Breast cancer metastatic
     Dosage: 125 MG
  2. LETROZOLE [Concomitant]
     Active Substance: LETROZOLE
     Dosage: 25 MG, 1X/DAY
     Dates: start: 202210

REACTIONS (1)
  - White blood cell count decreased [Recovered/Resolved]
